FAERS Safety Report 17462743 (Version 1)
Quarter: 2020Q1

REPORT INFORMATION
  Report Type: Spontaneous
  Country: US (occurrence: US)
  Receive Date: 20200226
  Receipt Date: 20200226
  Transmission Date: 20200409
  Serious: Yes (Other)
  Sender: FDA-Public Use
  Company Number: US-BAYER-2020-031877

PATIENT

DRUGS (1)
  1. CORICIDIN HBP COLD AND FLU [Suspect]
     Active Substance: ACETAMINOPHEN\CHLORPHENIRAMINE MALEATE
     Dosage: UNK
     Dates: start: 20200108

REACTIONS (1)
  - Blood pressure increased [None]
